FAERS Safety Report 9519778 (Version 1)
Quarter: 2013Q4

REPORT INFORMATION
  Report Type: Spontaneous
  Country: US (occurrence: None)
  Receive Date: 20130911
  Receipt Date: 20130911
  Transmission Date: 20140711
  Serious: Yes (Hospitalization)
  Sender: FDA-Public Use
  Company Number: None

PATIENT
  Age: 6 Year
  Sex: Female

DRUGS (2)
  1. SORAFENIB [Suspect]
     Indication: GLIONEURONAL TUMOUR
     Dosage: 100MG  BID  PO
     Route: 048
     Dates: start: 20130610, end: 20130901
  2. IRINOTECAN [Suspect]
     Indication: GLIONEURONAL TUMOUR
     Dosage: 60MG PO 5DAYS PER CYCLE
     Route: 048
     Dates: start: 20130610, end: 20130816

REACTIONS (5)
  - Headache [None]
  - Vomiting [None]
  - Diarrhoea [None]
  - Brain oedema [None]
  - VIIth nerve paralysis [None]
